FAERS Safety Report 8016040-X (Version None)
Quarter: 2011Q4

REPORT INFORMATION
  Report Type: 
  Country: None (occurrence: None)
  Receive Date: 20111230
  Receipt Date: 20111230
  Transmission Date: 20120403
  Serious: Yes (Other)
  Sender: FDA-Public Use
  Company Number: None

PATIENT
  Sex: Male
  Weight: 104.3 kg

DRUGS (1)
  1. CARBOPLATIN [Suspect]
     Dosage: 850MG
     Route: 042

REACTIONS (4)
  - CHEST DISCOMFORT [None]
  - WHEEZING [None]
  - COUGH [None]
  - INFUSION RELATED REACTION [None]
